FAERS Safety Report 6648468-4 (Version None)
Quarter: 2010Q1

REPORT INFORMATION
  Report Type: 
  Country: None (occurrence: None)
  Receive Date: 20100319
  Receipt Date: 20100310
  Transmission Date: 20100710
  Serious: Yes (Death)
  Sender: FDA-Public Use
  Company Number: 008625

PATIENT
  Sex: Male

DRUGS (1)
  1. PROSTAGLANDIN E1 (PROSTAGLANDIN E1) [Suspect]
     Dosage: 10 MG TOTAL INTRACAVERNOUS
     Route: 017

REACTIONS (1)
  - DEATH [None]
